FAERS Safety Report 5512152-0 (Version None)
Quarter: 2007Q4

REPORT INFORMATION
  Report Type: 
  Country: None (occurrence: None)
  Receive Date: 20071112
  Receipt Date: 20071029
  Transmission Date: 20080405
  Serious: Yes (Hospitalization, Other)
  Sender: FDA-Public Use
  Company Number: US-SHR-US-2007-022769

PATIENT
  Age: 54 Year
  Sex: Female
  Weight: 63.492 kg

DRUGS (2)
  1. BETASERON [Suspect]
     Indication: RELAPSING-REMITTING MULTIPLE SCLEROSIS
     Dosage: 8 MIU, EVERY 2D
     Route: 058
     Dates: start: 20020404
  2. BETASERON [Suspect]
     Route: 058
     Dates: start: 19980101, end: 19990101

REACTIONS (4)
  - GOITRE [None]
  - MUSCLE SPASMS [None]
  - PAIN IN EXTREMITY [None]
  - THYROID NEOPLASM [None]
